FAERS Safety Report 18953005 (Version 5)
Quarter: 2021Q2

REPORT INFORMATION
  Report Type: Spontaneous
  Country: US (occurrence: US)
  Receive Date: 20210301
  Receipt Date: 20210519
  Transmission Date: 20210717
  Serious: No
  Sender: FDA-Public Use
  Company Number: NVSC2021US039562

PATIENT
  Sex: Female

DRUGS (4)
  1. XIIDRA [Suspect]
     Active Substance: LIFITEGRAST
     Indication: DRY EYE
     Dosage: UNK UNK, BID
     Route: 047
  2. XIIDRA [Suspect]
     Active Substance: LIFITEGRAST
     Dosage: UNK, QD
     Route: 065
  3. RESTASIS [Suspect]
     Active Substance: CYCLOSPORINE
     Indication: PRODUCT USED FOR UNKNOWN INDICATION
     Dosage: UNK
     Route: 065
  4. NEOMYCIN. [Concomitant]
     Active Substance: NEOMYCIN
     Indication: INFLAMMATION
     Route: 065

REACTIONS (7)
  - Dry eye [Unknown]
  - Eye irritation [Unknown]
  - Eyelid irritation [Recovering/Resolving]
  - Eye pain [Not Recovered/Not Resolved]
  - Dysgeusia [Recovering/Resolving]
  - Vision blurred [Not Recovered/Not Resolved]
  - Visual impairment [Recovering/Resolving]
